FAERS Safety Report 24338422 (Version 1)
Quarter: 2024Q3

REPORT INFORMATION
  Report Type: Spontaneous
  Country: BR (occurrence: BR)
  Receive Date: 20240919
  Receipt Date: 20240919
  Transmission Date: 20241017
  Serious: Yes (Other)
  Sender: NOVARTIS
  Company Number: BR-002147023-NVSC2024BR176869

PATIENT
  Age: 41 Year
  Sex: Male
  Weight: 98 kg

DRUGS (2)
  1. COSENTYX [Suspect]
     Active Substance: SECUKINUMAB
     Indication: Ankylosing spondylitis
     Dosage: 150 MG (2 PENS WEEKS 0, 1, 2, 3 AND 4 AND AFTER ONCE A MONTH)
     Route: 065
     Dates: start: 202308
  2. COSENTYX [Suspect]
     Active Substance: SECUKINUMAB
     Dosage: 150 MG (2 PENS WEEKS 0, 1, 2, 3 AND 4 AND AFTER ONCE A MONTH)
     Route: 065
     Dates: start: 202308

REACTIONS (2)
  - Pyoderma gangrenosum [Unknown]
  - Skin ulcer [Recovered/Resolved]

NARRATIVE: CASE EVENT DATE: 20240505
